FAERS Safety Report 7626179-6 (Version None)
Quarter: 2011Q3

REPORT INFORMATION
  Report Type: 
  Country: None (occurrence: None)
  Receive Date: 20110721
  Receipt Date: 20110708
  Transmission Date: 20111222
  Serious: Yes (Hospitalization)
  Sender: FDA-Public Use
  Company Number: PHHY2011CH60979

PATIENT
  Age: 44 Year
  Sex: Female
  Weight: 70 kg

DRUGS (14)
  1. CLOZAPINE [Suspect]
     Dosage: 300 MG, QD
     Route: 048
     Dates: start: 20110308, end: 20110308
  2. LORAZEPAM [Suspect]
     Dosage: 3 MG, QD
     Route: 048
     Dates: start: 20110221
  3. KEMADRIN [Concomitant]
     Dosage: 10 MG, QD
  4. ROPINIROLE [Concomitant]
     Dosage: UNK UKN, UNK
     Dates: start: 20110321
  5. CLOZAPINE [Suspect]
     Indication: SCHIZOPHRENIA, CATATONIC TYPE
     Dosage: 400 MG, QD
     Route: 048
     Dates: start: 19900101, end: 20110307
  6. CLOZAPINE [Suspect]
     Dosage: 250 MG, QD
     Route: 048
     Dates: start: 20110309, end: 20110312
  7. ABILIFY [Suspect]
     Dosage: 5 MG, QD
     Dates: start: 20110227
  8. SOLIAN [Suspect]
     Dosage: 300 MG, QD
     Route: 048
     Dates: start: 20110309, end: 20110310
  9. LORAZEPAM [Suspect]
     Dosage: 7.5 MG, QD
     Route: 048
  10. SOLIAN [Suspect]
     Dosage: 100 MG, QD
     Route: 048
     Dates: start: 20110311, end: 20110312
  11. ABILIFY [Suspect]
     Dosage: 15 MG, QD
     Dates: start: 20100101
  12. SOLIAN [Suspect]
     Indication: SCHIZOPHRENIA, CATATONIC TYPE
     Dosage: 50 MG, QD
     Route: 048
     Dates: start: 20110307, end: 20110307
  13. SOLIAN [Suspect]
     Dosage: 250 MG, QD
     Route: 048
     Dates: start: 20110308, end: 20110308
  14. ZOLPIDEM [Suspect]
     Dosage: 1 DF, UNK
     Route: 048

REACTIONS (18)
  - EXTRAPYRAMIDAL DISORDER [None]
  - BRONCHOPNEUMONIA [None]
  - PYREXIA [None]
  - PSYCHIATRIC DECOMPENSATION [None]
  - CONFUSIONAL STATE [None]
  - TREMOR [None]
  - MUTISM [None]
  - HYPERHIDROSIS [None]
  - DISTURBANCE IN ATTENTION [None]
  - ASPIRATION BRONCHIAL [None]
  - PSYCHOMOTOR HYPERACTIVITY [None]
  - CATATONIA [None]
  - TACHYCARDIA [None]
  - URINARY TRACT INFECTION [None]
  - BLOOD CREATINE PHOSPHOKINASE INCREASED [None]
  - MUSCLE RIGIDITY [None]
  - NEUROLEPTIC MALIGNANT SYNDROME [None]
  - BRADYKINESIA [None]
